FAERS Safety Report 12016827 (Version 1)
Quarter: 2016Q1

REPORT INFORMATION
  Report Type: Spontaneous
  Country: US (occurrence: US)
  Receive Date: 20160205
  Receipt Date: 20160205
  Transmission Date: 20160526
  Serious: No
  Sender: FDA-Public Use
  Company Number: US-AMGEN-USASP2016000076

PATIENT
  Age: 59 Year
  Sex: Female

DRUGS (2)
  1. NEULASTA [Suspect]
     Active Substance: PEGFILGRASTIM
     Indication: NEUTROPENIA
     Dosage: 6 MG, UNK
     Route: 065
     Dates: start: 20151231
  2. TYLENOL [Suspect]
     Active Substance: ACETAMINOPHEN
     Indication: BONE PAIN
     Dosage: UNK
     Route: 065

REACTIONS (6)
  - Nausea [Unknown]
  - Arthralgia [Unknown]
  - Blood test abnormal [Unknown]
  - Bone pain [Recovered/Resolved]
  - Diarrhoea [Unknown]
  - Discomfort [Unknown]

NARRATIVE: CASE EVENT DATE: 201601
